FAERS Safety Report 9400262 (Version 2)
Quarter: 2013Q3

REPORT INFORMATION
  Report Type: Report from Study
  Country: US (occurrence: US)
  Receive Date: 20130715
  Receipt Date: 20130828
  Transmission Date: 20140515
  Serious: Yes (Hospitalization, Other)
  Sender: FDA-Public Use
  Company Number: US-ASTELLAS-2013EU004299

PATIENT
  Age: 55 Year
  Sex: Male
  Weight: 107.8 kg

DRUGS (35)
  1. BLINDED FIDAXOMICIN [Suspect]
     Indication: PROPHYLAXIS
     Dosage: 1 TABLET, QD
     Route: 048
     Dates: start: 20130322, end: 20130325
  2. MICAFUNGIN [Suspect]
     Indication: ANTIFUNGAL PROPHYLAXIS
     Dosage: 100-150 MG, Q24HR DAILY
     Route: 042
     Dates: start: 20130320
  3. TACROLIMUS SYSTEMIC [Suspect]
     Indication: PROPHYLAXIS AGAINST TRANSPLANT REJECTION
     Dosage: 0.5-1 MG, QPM
     Route: 048
     Dates: start: 20130408, end: 20130525
  4. VORICONAZOLE [Concomitant]
     Indication: ANTIFUNGAL PROPHYLAXIS
     Dosage: 400 MG, Q12 HOURS
     Route: 048
     Dates: start: 20130320
  5. ACETAMINOPHEN [Concomitant]
     Indication: PREMEDICATION
     Dosage: 650 MG, PRN
     Route: 048
     Dates: start: 20130327, end: 20130607
  6. ACYCLOVIR [Concomitant]
     Indication: PROPHYLAXIS
     Dosage: 500 MG, Q8H
     Route: 042
     Dates: start: 20130328, end: 20130417
  7. CHLORHEXIDINE [Concomitant]
     Indication: PROPHYLAXIS
     Dosage: 0.12-5 ML, QID
     Route: 048
     Dates: start: 20130320, end: 20130420
  8. DEFEROXAMINE [Concomitant]
     Indication: SERUM FERRITIN INCREASED
     Dosage: 2000 MG, PRN
     Route: 042
     Dates: start: 20130320
  9. DEFEROXAMINE [Concomitant]
     Dosage: 1000, 2000 MG, PRN
     Route: 042
     Dates: start: 20130328
  10. DIPHENHYDRAMINE [Concomitant]
     Indication: PROPHYLAXIS
     Dosage: 25 MG, PRN
     Route: 048
     Dates: start: 20130320
  11. FENTANYL [Concomitant]
     Indication: SEDATION
     Dosage: 100 ?G, SINGLE
     Route: 042
     Dates: start: 20130410, end: 20130410
  12. HYDROCORTISONE [Concomitant]
     Indication: RASH
     Dosage: 1 APP, PRN
     Route: 061
     Dates: start: 20130412, end: 20130412
  13. HYDROPHILIC PETROLATUM [Concomitant]
     Indication: RASH
     Dosage: 2 OZ, TID
     Route: 061
     Dates: start: 20130413, end: 20130420
  14. IMMUNOGLOBULIN [Concomitant]
     Indication: HERPES SIMPLEX
     Dosage: 20 G, Q12H
     Route: 042
     Dates: start: 20130410, end: 20130410
  15. INSULIN HUMAN NPH [Concomitant]
     Indication: TYPE 2 DIABETES MELLITUS
     Dosage: 8-60 U, HS
     Route: 058
     Dates: start: 20130321, end: 20130419
  16. INSULIN REGULAR HUMAN [Concomitant]
     Indication: TYPE 2 DIABETES MELLITUS
     Dosage: 1-35 U,PRN
     Route: 058
     Dates: start: 20130320
  17. LANSOPRAZOLE [Concomitant]
     Indication: PROPHYLAXIS
     Dosage: 30 MG, QD
     Route: 048
     Dates: start: 20130320, end: 20130420
  18. LEVETIRACETAM [Concomitant]
     Indication: PROPHYLAXIS
     Dosage: 500 MG, BID
     Route: 048
     Dates: start: 20130320
  19. LEVOFLOXACIN [Concomitant]
     Indication: PROPHYLAXIS
     Dosage: 500 MG, QD
     Route: 048
     Dates: start: 20130417, end: 20130428
  20. LORAZEPAM [Concomitant]
     Indication: PROPHYLAXIS OF NAUSEA AND VOMITING
     Dosage: 1 MG, Q24HR
     Route: 048
     Dates: start: 20130321, end: 20130413
  21. MAGNESIUM SULFATE [Concomitant]
     Indication: PROPHYLAXIS
     Dosage: 2,4,8 G, PRN
     Route: 042
     Dates: start: 20130408, end: 20130419
  22. METHYLPREDNISOLONE [Concomitant]
     Indication: PROPHYLAXIS
     Dosage: 10-213 MG,QD
     Route: 042
     Dates: start: 20130322, end: 20130419
  23. METOPROLOL [Concomitant]
     Indication: HYPERTENSION
     Dosage: 12.5 MG, Q12H
     Route: 048
     Dates: start: 20130323, end: 20130515
  24. METRONIDAZOLE [Concomitant]
     Indication: CLOSTRIDIUM DIFFICILE COLITIS
     Dosage: 500 MG, Q8H
     Route: 048
     Dates: start: 20130324, end: 20130420
  25. MIDAZOLAM [Concomitant]
     Indication: PREMEDICATION
     Dosage: 4 MG, SINGLE
     Route: 042
     Dates: start: 20130410, end: 20130410
  26. MORPHINE [Concomitant]
     Indication: ABDOMINAL PAIN
     Dosage: 2 MG, Q3HR
     Route: 042
     Dates: start: 20130412, end: 20130413
  27. BACTROBAN [Concomitant]
     Indication: PROPHYLAXIS
     Dosage: 1 APP, BID
     Route: 045
     Dates: start: 20130331
  28. ONDANSETRON [Concomitant]
     Indication: PROPHYLAXIS OF NAUSEA AND VOMITING
     Dosage: 4-8 MG, Q8H
     Route: 042
     Dates: start: 20130402, end: 20130417
  29. OXYCODONE IMMEDIATE RELEASE [Concomitant]
     Indication: BONE PAIN
     Dosage: 5-10 MG, Q4H
     Route: 048
     Dates: start: 20130406, end: 20130419
  30. PREDNISONE [Concomitant]
     Indication: GRAFT VERSUS HOST DISEASE
     Dosage: 90 MG, Q12H
     Route: 048
     Dates: start: 20130419
  31. SULFAMETHOXAZOLE W/TRIMETHOPRIM [Concomitant]
     Indication: ANTIBIOTIC PROPHYLAXIS
     Dosage: 800-80 MG, MWF
     Route: 048
     Dates: start: 20130228
  32. SULFAMETHOXAZOLE W/TRIMETHOPRIM [Concomitant]
     Indication: ANTIBIOTIC PROPHYLAXIS
  33. TRIAMCINOLONE [Concomitant]
     Indication: PRURITUS
     Dosage: 0.1 %, BID
     Route: 061
     Dates: start: 20130413, end: 20130424
  34. URSODIOL [Concomitant]
     Indication: PROPHYLAXIS
     Dosage: 300 MG, BID
     Route: 048
     Dates: start: 20130320
  35. ZOLPIDEM [Concomitant]
     Indication: INSOMNIA
     Dosage: 5 MG, HS
     Route: 048
     Dates: start: 20130415

REACTIONS (1)
  - Cytomegalovirus infection [Recovered/Resolved]
